FAERS Safety Report 9908832 (Version 1)
Quarter: 2014Q1

REPORT INFORMATION
  Report Type: Spontaneous
  Country: US (occurrence: US)
  Receive Date: 20140219
  Receipt Date: 20140219
  Transmission Date: 20141002
  Serious: Yes (Other)
  Sender: FDA-Public Use
  Company Number: US-ASTRAZENECA-2014SE09835

PATIENT
  Age: 59 Year
  Sex: Female
  Weight: 79.4 kg

DRUGS (2)
  1. SYMBICORT PMDI [Suspect]
     Indication: ASTHMA
     Dosage: 200, TWO TIMES A DAY
     Route: 055
     Dates: start: 2013
  2. LISINOPRIL [Suspect]
     Indication: PERIPHERAL VASCULAR DISORDER
     Route: 048

REACTIONS (9)
  - Road traffic accident [Unknown]
  - Choking [Unknown]
  - Body height decreased [Unknown]
  - Osteoporosis [Unknown]
  - Osteopenia [Unknown]
  - Pneumonia [Unknown]
  - Hypertension [Unknown]
  - Cough [Unknown]
  - Intentional drug misuse [Unknown]
